APPROVED DRUG PRODUCT: PANTOPRAZOLE SODIUM
Active Ingredient: PANTOPRAZOLE SODIUM
Strength: EQ 40MG BASE/VIAL
Dosage Form/Route: INJECTABLE;INTRAVENOUS
Application: A090296 | Product #001
Applicant: SANDOZ INC
Approved: Jul 14, 2015 | RLD: No | RS: No | Type: DISCN